FAERS Safety Report 20164539 (Version 1)
Quarter: 2021Q4

REPORT INFORMATION
  Report Type: Spontaneous
  Country: US (occurrence: None)
  Receive Date: 20211208
  Receipt Date: 20211208
  Transmission Date: 20220303
  Serious: Yes (Hospitalization)
  Sender: FDA-Public Use
  Company Number: None

PATIENT
  Sex: Male

DRUGS (1)
  1. PULMOZYME [Suspect]
     Active Substance: DORNASE ALFA
     Indication: Cystic fibrosis
     Dosage: OTHER QUANTITY : 1 AMPULE ;?FREQUENCY : TWICE DAILY FOR 28 DAYS ON, THEN 28 DAYS OFF?
     Route: 048
     Dates: start: 202103

REACTIONS (2)
  - Staphylococcal infection [None]
  - Pseudomonas infection [None]
